FAERS Safety Report 7297606-1 (Version None)
Quarter: 2011Q1

REPORT INFORMATION
  Report Type: 
  Country: None (occurrence: None)
  Receive Date: 20110216
  Receipt Date: 20110202
  Transmission Date: 20110831
  Serious: Yes (Other)
  Sender: FDA-Public Use
  Company Number: US-CELGENEUS-163-21880-10100659

PATIENT
  Sex: Female
  Weight: 51.8 kg

DRUGS (3)
  1. REVLIMID [Suspect]
     Route: 048
     Dates: start: 20100826
  2. REVLIMID [Suspect]
     Route: 048
     Dates: start: 20100101
  3. EXJADE [Suspect]
     Route: 065

REACTIONS (3)
  - DIARRHOEA [None]
  - CYSTITIS [None]
  - SQUAMOUS CELL CARCINOMA OF SKIN [None]
